FAERS Safety Report 14530542 (Version 4)
Quarter: 2018Q4

REPORT INFORMATION
  Report Type: Spontaneous
  Country: JP (occurrence: JP)
  Receive Date: 20180214
  Receipt Date: 20181121
  Transmission Date: 20190204
  Serious: Yes (Death, Hospitalization)
  Sender: FDA-Public Use
  Company Number: JP-JNJFOC-20180218188

PATIENT
  Age: 90 Year
  Sex: Male
  Weight: 60 kg

DRUGS (15)
  1. XARELTO [Suspect]
     Active Substance: RIVAROXABAN
     Indication: ATRIAL FIBRILLATION
     Route: 048
     Dates: start: 20180118, end: 20180201
  2. TRAZENTA [Concomitant]
     Active Substance: LINAGLIPTIN
     Route: 065
  3. LANSOPRAZOLE. [Concomitant]
     Active Substance: LANSOPRAZOLE
     Route: 065
  4. AMLODIPINE [Concomitant]
     Active Substance: AMLODIPINE BESYLATE
     Route: 065
  5. FLUITRAN [Concomitant]
     Active Substance: TRICHLORMETHIAZIDE
     Route: 065
  6. TEPRENONE [Concomitant]
     Active Substance: TEPRENONE
     Route: 065
  7. TOLVAPTAN [Concomitant]
     Active Substance: TOLVAPTAN
     Route: 065
  8. BONOTEO [Concomitant]
     Active Substance: MINODRONIC ACID
     Route: 065
  9. EXFORGE [Concomitant]
     Active Substance: AMLODIPINE BESYLATE\VALSARTAN
     Route: 065
  10. MAGNESIUM [Concomitant]
     Active Substance: MAGNESIUM
     Route: 065
  11. XARELTO [Suspect]
     Active Substance: RIVAROXABAN
     Indication: DEEP VEIN THROMBOSIS
     Route: 048
     Dates: start: 20180118, end: 20180201
  12. THYRADIN [Concomitant]
     Active Substance: LEVOTHYROXINE
     Route: 065
  13. HERBAL EXTRACT NOS [Concomitant]
     Active Substance: HERBALS
     Route: 065
  14. LUNESTA [Concomitant]
     Active Substance: ESZOPICLONE
     Route: 065
  15. MYSLEE [Concomitant]
     Active Substance: ZOLPIDEM TARTRATE
     Route: 065

REACTIONS (3)
  - Cardiac failure acute [Fatal]
  - Urinary retention [Unknown]
  - Upper gastrointestinal haemorrhage [Fatal]

NARRATIVE: CASE EVENT DATE: 20180131
